FAERS Safety Report 4721613-3 (Version None)
Quarter: 2005Q3

REPORT INFORMATION
  Report Type: 
  Country: None (occurrence: None)
  Receive Date: 20050721
  Receipt Date: 20050103
  Transmission Date: 20060218
  Serious: No
  Sender: FDA-Public Use
  Company Number: US-BRISTOL-MYERS SQUIBB COMPANY-12811147

PATIENT
  Age: 49 Year
  Sex: Male
  Weight: 110 kg

DRUGS (3)
  1. COUMADIN [Suspect]
     Indication: LEG AMPUTATION
     Dosage: BEGAN FALL 2003 AT 10 MG/D, GRAD. INCREASED OVER 6-MO PERIOD TO CURRENT DOSE=25MG/D
     Route: 048
     Dates: start: 20030101
  2. COUMADIN [Suspect]
     Indication: SARCOMA
     Dosage: BEGAN FALL 2003 AT 10 MG/D, GRAD. INCREASED OVER 6-MO PERIOD TO CURRENT DOSE=25MG/D
     Route: 048
     Dates: start: 20030101
  3. LOVENOX [Suspect]
     Dates: start: 20040101

REACTIONS (2)
  - DRUG INEFFECTIVE [None]
  - INTERNATIONAL NORMALISED RATIO ABNORMAL [None]
